FAERS Safety Report 16394514 (Version 5)
Quarter: 2019Q3

REPORT INFORMATION
  Report Type: Report from Study
  Country: PT (occurrence: PT)
  Receive Date: 20190605
  Receipt Date: 20190920
  Transmission Date: 20191004
  Serious: Yes (Death, Hospitalization, Other)
  Sender: FDA-Public Use
  Company Number: PT-GILEAD-2019-0409996

PATIENT
  Age: 39 Year
  Sex: Female
  Weight: 83 kg

DRUGS (1)
  1. AXICABTAGENE CILOLEUCEL [Suspect]
     Active Substance: AXICABTAGENE CILOLEUCEL
     Indication: DIFFUSE LARGE B-CELL LYMPHOMA
     Dosage: UNK
     Route: 042
     Dates: start: 20190514, end: 20190514

REACTIONS (5)
  - Brain oedema [Fatal]
  - Cytokine release syndrome [Recovered/Resolved]
  - Hypernatraemia [Fatal]
  - Neurotoxicity [Fatal]
  - Pyrexia [Unknown]

NARRATIVE: CASE EVENT DATE: 20190515
